FAERS Safety Report 8013719-0 (Version None)
Quarter: 2011Q4

REPORT INFORMATION
  Report Type: 
  Country: None (occurrence: None)
  Receive Date: 20111229
  Receipt Date: 20111219
  Transmission Date: 20120403
  Serious: Yes (Other)
  Sender: FDA-Public Use
  Company Number: JP-ELI_LILLY_AND_COMPANY-JP201111002175

PATIENT
  Age: 83 Year
  Sex: Female

DRUGS (11)
  1. FORTEO [Suspect]
     Dosage: UNK
     Route: 058
     Dates: start: 20111031, end: 20111102
  2. ALFAROL [Concomitant]
     Dosage: 1 UG, EACH MORNING
     Route: 048
  3. OPALMON [Concomitant]
     Dosage: 5 UG, TID
     Route: 048
  4. DICLOFENAC SODIUM [Concomitant]
     Dosage: UNK, BID
     Route: 062
  5. CELECOXIB [Concomitant]
     Dosage: 200 MG, BID
     Route: 048
  6. AZULFIDINE [Concomitant]
     Dosage: 500 MG, BID
     Route: 048
  7. VOLTAREN [Concomitant]
     Dosage: 50 MG, QD
     Route: 054
  8. MS REISHIPPU [Concomitant]
     Dosage: UNK
     Route: 062
  9. LANSOPRAZOLE [Concomitant]
     Dosage: 15 MG, QD
     Route: 048
  10. SELBEX [Concomitant]
     Dosage: 0.5 G, TID
     Route: 048
  11. LENDORMIN [Concomitant]
     Dosage: 0.25 MG, QD
     Route: 048

REACTIONS (7)
  - EXCORIATION [None]
  - DYSGEUSIA [None]
  - PAIN [None]
  - DECREASED APPETITE [None]
  - GASTROOESOPHAGEAL REFLUX DISEASE [None]
  - GLOSSITIS [None]
  - ABDOMINAL PAIN [None]
